FAERS Safety Report 5519627-9 (Version None)
Quarter: 2007Q4

REPORT INFORMATION
  Report Type: 
  Country: None (occurrence: None)
  Receive Date: 20071116
  Receipt Date: 20071113
  Transmission Date: 20080405
  Serious: Yes (Other)
  Sender: FDA-Public Use
  Company Number: JP-BRISTOL-MYERS SQUIBB COMPANY-13980859

PATIENT

DRUGS (2)
  1. BRIPLATIN [Suspect]
     Indication: PANCREATIC CARCINOMA
  2. GEMZAR [Suspect]

REACTIONS (10)
  - ANOREXIA [None]
  - DIARRHOEA [None]
  - FATIGUE [None]
  - HAEMATOTOXICITY [None]
  - HEPATIC ENZYME INCREASED [None]
  - NAUSEA [None]
  - NEPHROPATHY TOXIC [None]
  - RASH [None]
  - STOMATITIS [None]
  - VOMITING [None]
